FAERS Safety Report 9741410 (Version 2)
Quarter: 2013Q4

REPORT INFORMATION
  Report Type: Report from Study
  Country: US (occurrence: US)
  Receive Date: 20131209
  Receipt Date: 20131209
  Transmission Date: 20140711
  Serious: Yes (Other)
  Sender: FDA-Public Use
  Company Number: PHEH2013US003213

PATIENT
  Age: 67 Year
  Sex: Female

DRUGS (6)
  1. GLEEVEC [Suspect]
     Indication: CHRONIC MYELOID LEUKAEMIA
     Dosage: 400 MG, DAILY
     Route: 048
     Dates: start: 20120120
  2. POTASSIUM [Concomitant]
  3. LASIX [Concomitant]
     Dosage: 20 MG, DAILY
     Route: 048
  4. LISINOPRIL [Concomitant]
     Dosage: 20 MG, DAILY
     Route: 048
  5. PRILOSEC [Concomitant]
     Dosage: 40 MG, DAILY
     Route: 048
  6. K-DUR [Concomitant]
     Dosage: 10 MEQ, DAILY
     Route: 048

REACTIONS (15)
  - Skin exfoliation [Not Recovered/Not Resolved]
  - Abdominal discomfort [Not Recovered/Not Resolved]
  - Adenoma benign [Unknown]
  - Frequent bowel movements [Unknown]
  - Stress [Unknown]
  - Pain [Unknown]
  - Blood pressure systolic decreased [Unknown]
  - Dry skin [Unknown]
  - Muscle spasms [Unknown]
  - Pain in extremity [Unknown]
  - Fatigue [Unknown]
  - Hyperuricaemia [Unknown]
  - Blood creatinine increased [Unknown]
  - Blood urea increased [Unknown]
  - Anaemia [Unknown]
